FAERS Safety Report 6611688-9 (Version None)
Quarter: 2010Q1

REPORT INFORMATION
  Report Type: 
  Country: None (occurrence: None)
  Receive Date: 20100303
  Receipt Date: 20100222
  Transmission Date: 20100710
  Serious: Yes (Hospitalization)
  Sender: FDA-Public Use
  Company Number: JP-JNJFOC-20100206342

PATIENT
  Sex: Female
  Weight: 46 kg

DRUGS (9)
  1. RISPERDAL [Suspect]
     Indication: SCHIZOPHRENIA
     Route: 048
  2. SERENACE [Suspect]
     Indication: DRUG USE FOR UNKNOWN INDICATION
     Route: 042
  3. BLONANSERIN [Suspect]
     Indication: SCHIZOPHRENIA
     Route: 048
  4. LEVOTOMIN [Suspect]
     Indication: SCHIZOPHRENIA
     Route: 048
  5. FLUNITRAZEPAM [Suspect]
     Indication: SCHIZOPHRENIA
     Route: 048
  6. BIPERIDEN HYDROCHLORIDE [Concomitant]
     Indication: PARKINSONISM
     Route: 048
  7. MOSAPRIDE CITRATE [Concomitant]
     Indication: CONSTIPATION
     Route: 048
  8. BIFIDOBACTERIUM [Concomitant]
     Indication: CONSTIPATION
     Route: 048
  9. SENNARIDE [Concomitant]
     Indication: CONSTIPATION
     Route: 048

REACTIONS (5)
  - AGITATION [None]
  - INCOHERENT [None]
  - INSOMNIA [None]
  - RHABDOMYOLYSIS [None]
  - STUPOR [None]
